FAERS Safety Report 9657418 (Version 1)
Quarter: 2013Q4

REPORT INFORMATION
  Report Type: Report from Study
  Country: US (occurrence: US)
  Receive Date: 20131030
  Receipt Date: 20131030
  Transmission Date: 20140711
  Serious: Yes (Other)
  Sender: FDA-Public Use
  Company Number: US-ABBVIE-13P-163-1160863-00

PATIENT
  Age: 53 Year
  Sex: Female

DRUGS (3)
  1. HUMIRA [Suspect]
     Indication: PSORIASIS
     Route: 058
     Dates: start: 20121213
  2. HUMIRA [Suspect]
     Indication: PSORIATIC ARTHROPATHY
  3. COUMADIN [Concomitant]
     Indication: PRODUCT USED FOR UNKNOWN INDICATION

REACTIONS (4)
  - Intracardiac thrombus [Recovering/Resolving]
  - Hypoaesthesia [Recovering/Resolving]
  - Cerebrovascular accident [Recovering/Resolving]
  - Paraesthesia [Recovering/Resolving]
